FAERS Safety Report 7513239-3 (Version None)
Quarter: 2011Q2

REPORT INFORMATION
  Report Type: 
  Country: None (occurrence: None)
  Receive Date: 20110531
  Receipt Date: 20110428
  Transmission Date: 20111010
  Serious: Yes (Hospitalization)
  Sender: FDA-Public Use
  Company Number: US-BAYER-2010-009202

PATIENT
  Age: 23 Year
  Sex: Female
  Weight: 72.562 kg

DRUGS (8)
  1. YASMIN [Suspect]
     Indication: CONTRACEPTION
  2. YASMIN [Suspect]
     Indication: ACNE
     Dosage: UNK
     Dates: start: 20050101, end: 20090101
  3. DROSPIRENONE AND ETHINYL ESTRADIOL [Suspect]
     Indication: CONTRACEPTION
  4. DROSPIRENONE AND ETHINYL ESTRADIOL [Suspect]
     Indication: ACNE
     Dosage: UNK
     Dates: start: 20050101, end: 20090101
  5. MOTRIN [Concomitant]
  6. ALBUTEROL INHALER [Concomitant]
     Indication: ASTHMA
  7. YAZ [Suspect]
     Indication: ACNE
     Dosage: UNK
     Dates: start: 20050101, end: 20090101
  8. YAZ [Suspect]
     Indication: CONTRACEPTION

REACTIONS (4)
  - CHOLECYSTITIS ACUTE [None]
  - CHOLECYSTITIS CHRONIC [None]
  - PAIN [None]
  - GALLBLADDER DISORDER [None]
